FAERS Safety Report 20722629 (Version 4)
Quarter: 2025Q3

REPORT INFORMATION
  Report Type: Spontaneous
  Country: EU (occurrence: EU)
  Receive Date: 20220419
  Receipt Date: 20250813
  Transmission Date: 20251020
  Serious: Yes (Hospitalization, Other)
  Sender: AUROBINDO
  Company Number: EU-AUROBINDO-AUR-APL-2022-012907

PATIENT
  Age: 89 Year
  Sex: Female

DRUGS (8)
  1. ERTAPENEM [Suspect]
     Active Substance: ERTAPENEM
     Indication: Cystitis
     Dosage: 1000 MILLIGRAM, ONCE A DAY
     Route: 042
  2. ERTAPENEM [Suspect]
     Active Substance: ERTAPENEM
     Indication: Cystitis klebsiella
  3. ERTAPENEM [Suspect]
     Active Substance: ERTAPENEM
     Indication: Pneumonia klebsiella
  4. AMLODIPINE [Concomitant]
     Active Substance: AMLODIPINE BESYLATE
     Indication: Hypertension
     Dosage: 5 MILLIGRAM, ONCE A DAY
     Route: 065
  5. AMOXICILLIN\CLAVULANATE POTASSIUM [Concomitant]
     Active Substance: AMOXICILLIN\CLAVULANATE POTASSIUM
     Indication: Product used for unknown indication
     Dosage: 1200 MILLIGRAM, 3 TIMES A DAY (3600 MILLIGRAM ONCE A DAY)
     Route: 065
  6. AMOXICILLIN\CLAVULANATE POTASSIUM [Concomitant]
     Active Substance: AMOXICILLIN\CLAVULANATE POTASSIUM
     Dosage: 1200 MILLIGRAM, ONCE A DAY
     Route: 065
  7. FERRIC CARBOXYMALTOSE [Concomitant]
     Active Substance: FERRIC CARBOXYMALTOSE
     Indication: Anaemia
     Route: 042
  8. LISINOPRIL [Concomitant]
     Active Substance: LISINOPRIL
     Indication: Hypertension
     Dosage: 20 MILLIGRAM, ONCE A DAY
     Route: 065

REACTIONS (7)
  - Toxic encephalopathy [Recovered/Resolved]
  - Confusional state [Recovered/Resolved]
  - Hallucination, visual [Recovered/Resolved]
  - Delirium [Recovered/Resolved]
  - Lethargy [Recovered/Resolved]
  - Disturbance in attention [Recovered/Resolved]
  - Neurotoxicity [Recovered/Resolved]
